FAERS Safety Report 4439575-5 (Version None)
Quarter: 2004Q3

REPORT INFORMATION
  Report Type: 
  Country: None (occurrence: None)
  Receive Date: 20040902
  Receipt Date: 20040820
  Transmission Date: 20050211
  Serious: Yes (Hospitalization)
  Sender: FDA-Public Use
  Company Number: CH-BRISTOL-MYERS SQUIBB COMPANY-12680971

PATIENT
  Age: 77 Year
  Sex: Male

DRUGS (9)
  1. GLUCOPHAGE [Suspect]
     Indication: DIABETES MELLITUS
     Dosage: DURATION OF THERAPY:  ^YEARS^
     Route: 048
     Dates: end: 20040730
  2. LASIX [Interacting]
     Indication: HYPERTENSION
     Dosage: DURATION OF THERAPY:  ^YEARS^
     Route: 048
     Dates: end: 20040730
  3. ZESTRIL [Concomitant]
     Indication: HYPERTENSION
     Dosage: DURATION OF THERAPY:  ^YEARS^
     Route: 048
     Dates: end: 20040730
  4. TOREM [Concomitant]
     Indication: HYPERTENSION
     Dosage: DURATION OF THERAPY:  ^YEARS^
     Route: 048
  5. PREDNISONE [Concomitant]
     Indication: SCLERODERMA
     Dosage: DURATION OF THERAPY:  ^YEARS^
     Route: 048
  6. DILTIAZEM HCL [Concomitant]
     Indication: HYPERTENSION
     Dosage: DURATION OF THERAPY:  ^YEARS^
     Route: 048
     Dates: end: 20040730
  7. COLCHICINE [Concomitant]
     Indication: SCLERODERMA
     Dosage: DURATION OF THERAPY:  ^YEARS^
     Route: 048
     Dates: end: 20040730
  8. INSULATARD HUMAN INJECTION [Concomitant]
     Indication: DIABETES MELLITUS
     Dosage: DOSE:  24-0-8 UI
     Route: 058
     Dates: start: 20020101
  9. OXYGEN [Concomitant]
     Indication: INTERSTITIAL LUNG DISEASE

REACTIONS (7)
  - DRUG INTERACTION [None]
  - GASTROENTERITIS SALMONELLA [None]
  - LACTIC ACIDOSIS [None]
  - METABOLIC ACIDOSIS [None]
  - RENAL FAILURE ACUTE [None]
  - SEPSIS [None]
  - SEPTIC SHOCK [None]
